FAERS Safety Report 11169950 (Version 1)
Quarter: 2015Q2

REPORT INFORMATION
  Report Type: Spontaneous
  Country: BR (occurrence: BR)
  Receive Date: 20150608
  Receipt Date: 20150608
  Transmission Date: 20150821
  Serious: Yes (Death, Other)
  Sender: FDA-Public Use
  Company Number: BR-AMGEN-BRASP2015054279

PATIENT
  Age: 65 Year
  Sex: Male
  Weight: 90 kg

DRUGS (1)
  1. ENBREL [Suspect]
     Active Substance: ETANERCEPT
     Indication: PSORIASIS
     Dosage: 50 MG, 1X/WEEK
     Route: 058
     Dates: end: 20140715

REACTIONS (7)
  - Skin disorder [Unknown]
  - Pneumonia [Unknown]
  - Condition aggravated [Fatal]
  - Psoriasis [Fatal]
  - Drug-induced liver injury [Unknown]
  - Blood test abnormal [Unknown]
  - Bacterial infection [Unknown]
